FAERS Safety Report 11169241 (Version 2)
Quarter: 2015Q2

REPORT INFORMATION
  Report Type: Spontaneous
  Country: AR (occurrence: AR)
  Receive Date: 20150605
  Receipt Date: 20150629
  Transmission Date: 20150821
  Serious: Yes (Hospitalization, Other)
  Sender: FDA-Public Use
  Company Number: CHPA2015AR006927

PATIENT
  Age: 69 Year
  Sex: Female

DRUGS (8)
  1. NICOTINELL [Suspect]
     Active Substance: NICOTINE
     Indication: SMOKING CESSATION THERAPY
     Dosage: 2 MG, TID, FREQUENCY: IT DEPENDS
     Route: 065
     Dates: start: 2004
  2. NICOTINELL [Suspect]
     Active Substance: NICOTINE
     Dosage: 4 MG, TID, FREQUENCY: IT DEPENDS
     Route: 065
  3. PREGABALINE [Concomitant]
     Active Substance: PREGABALIN
     Indication: PRODUCT USED FOR UNKNOWN INDICATION
     Dosage: UNK
     Route: 065
  4. ZOLPIDEM HEMITARTRATE [Concomitant]
     Active Substance: ZOLPIDEM\ZOLPIDEM TARTRATE
     Indication: SLEEP DISORDER
     Dosage: UNK
     Route: 065
  5. CARVEDILOL. [Concomitant]
     Active Substance: CARVEDILOL
     Indication: PRODUCT USED FOR UNKNOWN INDICATION
     Dosage: UNK
     Route: 065
  6. ROSUVASTATIN [Concomitant]
     Active Substance: ROSUVASTATIN
     Indication: BLOOD CHOLESTEROL
     Dosage: UNK
     Route: 065
  7. ASPIRIN. [Concomitant]
     Active Substance: ASPIRIN
     Indication: PRODUCT USED FOR UNKNOWN INDICATION
     Dosage: UNK
     Route: 065
  8. SERTRALINE [Concomitant]
     Active Substance: SERTRALINE HYDROCHLORIDE
     Indication: PRODUCT USED FOR UNKNOWN INDICATION
     Dosage: UNK
     Route: 065

REACTIONS (21)
  - Hyperhidrosis [Unknown]
  - Coronary artery occlusion [Unknown]
  - Accident [Unknown]
  - Feeling abnormal [Unknown]
  - Drug dependence [Unknown]
  - Hypotension [Unknown]
  - Myocardial infarction [Unknown]
  - Fractured sacrum [Unknown]
  - Spinal cord disorder [Unknown]
  - Fall [Unknown]
  - Dyspnoea [Unknown]
  - Lower limb fracture [Unknown]
  - Nausea [Unknown]
  - Blood cholesterol increased [Unknown]
  - Angina unstable [Unknown]
  - Pelvic fracture [Unknown]
  - Wrong technique in drug usage process [Unknown]
  - Blood pressure increased [Unknown]
  - Hip fracture [Unknown]
  - Burning sensation [Unknown]
  - Neck pain [Unknown]

NARRATIVE: CASE EVENT DATE: 2012
